FAERS Safety Report 7190624-3 (Version None)
Quarter: 2010Q4

REPORT INFORMATION
  Report Type: 
  Country: None (occurrence: None)
  Receive Date: 20101223
  Receipt Date: 20101213
  Transmission Date: 20110411
  Serious: Yes (Hospitalization)
  Sender: FDA-Public Use
  Company Number: FR-JNJFOC-20101207140

PATIENT
  Sex: Male

DRUGS (7)
  1. IXPRIM [Suspect]
     Indication: BACK PAIN
     Route: 048
     Dates: start: 20100831, end: 20100910
  2. IXPRIM [Suspect]
     Route: 048
     Dates: start: 20100831, end: 20100910
  3. ASPIRIN [Suspect]
     Indication: PRODUCT USED FOR UNKNOWN INDICATION
     Route: 048
  4. DICLOFENAC [Suspect]
     Indication: BACK PAIN
     Route: 003
  5. VOLTAREN [Suspect]
     Indication: BACK PAIN
     Route: 030
  6. SURGAM [Concomitant]
  7. CODEINE W/PARACETAMOL [Concomitant]
     Dates: start: 20100819, end: 20100828

REACTIONS (1)
  - ERYTHEMA MULTIFORME [None]
